FAERS Safety Report 5866990-5 (Version None)
Quarter: 2008Q3

REPORT INFORMATION
  Report Type: 
  Country: None (occurrence: None)
  Receive Date: 20080902
  Receipt Date: 20080821
  Transmission Date: 20090109
  Serious: Yes (Hospitalization)
  Sender: FDA-Public Use
  Company Number: FR-WYE-H05684008

PATIENT
  Sex: Male

DRUGS (6)
  1. INIPOMP [Suspect]
     Dosage: 40 MG, FREQUENCY UNKNOWN
     Route: 042
     Dates: start: 20080529, end: 20080628
  2. ROCEPHIN [Suspect]
     Dosage: UNKNOWN
     Route: 042
     Dates: start: 20080602, end: 20080619
  3. SUFENTA [Suspect]
     Dosage: UNKNOWN
     Route: 042
     Dates: start: 20080602, end: 20080613
  4. ACETAMINOPHEN [Suspect]
     Dosage: 10 MG/ML SOLUTION, DOSE UNKNOWN
     Route: 042
     Dates: start: 20080603, end: 20080615
  5. LASIX [Suspect]
     Dosage: UNKNOWN
     Route: 042
     Dates: start: 20080529, end: 20080614
  6. FLAGYL [Suspect]
     Dosage: 0.5 % SOLUTION, UNKNOWN DOSE
     Route: 042
     Dates: start: 20080529, end: 20080619

REACTIONS (1)
  - RASH MACULO-PAPULAR [None]
